FAERS Safety Report 23573862 (Version 3)
Quarter: 2024Q1

REPORT INFORMATION
  Report Type: Report from Study
  Country: US (occurrence: US)
  Receive Date: 20240228
  Receipt Date: 20240328
  Transmission Date: 20240410
  Serious: Yes (Hospitalization, Disabling, Other)
  Sender: FDA-Public Use
  Company Number: US-TAIHOP-2023-004079

PATIENT
  Age: 71 Year
  Sex: Female

DRUGS (23)
  1. LONSURF [Suspect]
     Active Substance: TIPIRACIL HYDROCHLORIDE\TRIFLURIDINE
     Indication: Rectal cancer
     Dosage: CYCLE 1
     Route: 048
     Dates: start: 20230428, end: 20240214
  2. LONSURF [Suspect]
     Active Substance: TIPIRACIL HYDROCHLORIDE\TRIFLURIDINE
     Dosage: DOSE: 3 TABLETS IN THE MORNING AND 2 TABLETS IN THE EVENING. CYCLE UNKNOWN.?DAILY DOSE: 100 MILLIGRA
     Route: 048
  3. PANITUMUMAB [Suspect]
     Active Substance: PANITUMUMAB
     Indication: Product used for unknown indication
     Dosage: EVERY 4 WEEKS
     Dates: start: 20230601, end: 20240214
  4. HEPARIN [Suspect]
     Active Substance: HEPARIN SODIUM
     Indication: Product used for unknown indication
     Route: 042
  5. PANTOPRAZOLE [Suspect]
     Active Substance: PANTOPRAZOLE
     Indication: Product used for unknown indication
  6. BEVACIZUMAB [Concomitant]
     Active Substance: BEVACIZUMAB
     Indication: Product used for unknown indication
  7. TYLENOL [Concomitant]
     Active Substance: ACETAMINOPHEN
     Indication: Product used for unknown indication
  8. TYLENOL [Concomitant]
     Active Substance: ACETAMINOPHEN
     Dosage: AS NEEDED
     Route: 048
  9. MULTIVITAMIN WOMENS [Concomitant]
     Indication: Product used for unknown indication
     Dosage: TAKE 2 EACH BY MOUTH DAILY
     Route: 048
  10. VENTOLIN HFA [Concomitant]
     Active Substance: ALBUTEROL SULFATE
     Indication: Product used for unknown indication
     Dosage: AER
  11. DOXYCYCLINE HYCLATE [Concomitant]
     Active Substance: DOXYCYCLINE HYCLATE
     Indication: Product used for unknown indication
  12. MAGNESIUM OXIDE [Concomitant]
     Active Substance: MAGNESIUM OXIDE
     Indication: Product used for unknown indication
  13. ZOFRAN [Concomitant]
     Active Substance: ONDANSETRON HYDROCHLORIDE
     Indication: Nausea
     Route: 048
  14. PREDNISONE [Concomitant]
     Active Substance: PREDNISONE
     Indication: Product used for unknown indication
  15. COMPAZINE [Concomitant]
     Active Substance: PROCHLORPERAZINE MALEATE
     Indication: Product used for unknown indication
     Dosage: AS NEEDED.
     Route: 048
  16. CRANBERRY [Concomitant]
     Active Substance: CRANBERRY
     Indication: Product used for unknown indication
     Route: 048
  17. SIMETHICONE (DIMETHICONE) [Concomitant]
     Active Substance: DIMETHICONE
     Indication: Product used for unknown indication
     Dosage: CHEW?AS NEEDED.
     Route: 048
  18. CALTRATE WITH VITAMIN D [Concomitant]
     Active Substance: CALCIUM CARBONATE\CHOLECALCIFEROL
     Indication: Product used for unknown indication
     Route: 048
  19. ATIVAN [Concomitant]
     Active Substance: LORAZEPAM
     Indication: Nausea
     Dosage: AS NEEDED.?2MG/ML CONC.?30ML
     Route: 048
  20. ATIVAN [Concomitant]
     Active Substance: LORAZEPAM
     Indication: Anxiety
  21. ATIVAN [Concomitant]
     Active Substance: LORAZEPAM
     Indication: Insomnia
  22. MAGNESIUM [Concomitant]
     Active Substance: MAGNESIUM
     Indication: Product used for unknown indication
     Route: 048
  23. METAMUCIL [Concomitant]
     Active Substance: PLANTAGO SEED
     Indication: Product used for unknown indication
     Dosage: 1 PACKET
     Route: 048

REACTIONS (30)
  - Deep vein thrombosis [Unknown]
  - Alopecia [Not Recovered/Not Resolved]
  - Weight decreased [Recovering/Resolving]
  - Decreased appetite [Recovering/Resolving]
  - Kidney infection [Unknown]
  - Pulmonary artery thrombosis [Unknown]
  - Haematuria [Unknown]
  - Febrile neutropenia [Unknown]
  - Atelectasis [Unknown]
  - Pancytopenia [Recovered/Resolved]
  - Hypotension [Unknown]
  - Hydronephrosis [Unknown]
  - Hypomagnesaemia [Unknown]
  - Sacral pain [Unknown]
  - Hypertension [Unknown]
  - Neuropathy peripheral [Unknown]
  - Contrast media allergy [Not Recovered/Not Resolved]
  - Dizziness [Unknown]
  - Nausea [Recovering/Resolving]
  - Fatigue [Not Recovered/Not Resolved]
  - Diarrhoea [Recovering/Resolving]
  - Ageusia [Unknown]
  - Intentional dose omission [Unknown]
  - Procedural pain [Unknown]
  - Inappropriate schedule of product administration [Unknown]
  - Epistaxis [Unknown]
  - Blood calcium decreased [Unknown]
  - Hyperaesthesia [Unknown]
  - Swelling [Unknown]
  - Muscle strain [Unknown]

NARRATIVE: CASE EVENT DATE: 20230814
